FAERS Safety Report 9517528 (Version 2)
Quarter: 2013Q4

REPORT INFORMATION
  Report Type: Spontaneous
  Country: US (occurrence: US)
  Receive Date: 20130911
  Receipt Date: 20131202
  Transmission Date: 20140711
  Serious: Yes (Death, Hospitalization, Other)
  Sender: FDA-Public Use
  Company Number: US-MPIJNJ-2013MPI000254

PATIENT
  Age: 64 Year
  Sex: Male

DRUGS (13)
  1. VELCADE [Suspect]
     Indication: PLASMA CELL MYELOMA
     Dosage: UNK UNK, 1/WEEK
     Route: 058
     Dates: start: 20130725, end: 20130808
  2. ADVAIR [Concomitant]
     Dosage: 50 ?G, BID
     Route: 055
     Dates: start: 20130613
  3. AMARYL [Concomitant]
     Dosage: 4 MG, UNK
     Dates: start: 20130613
  4. DEXAMETHASONE [Concomitant]
     Dosage: 4 MG, QID
     Route: 048
     Dates: start: 20130613
  5. FLEXERIL                           /00428402/ [Concomitant]
     Dosage: 10 MG, QD
     Route: 048
     Dates: start: 20130613
  6. LORTAB                             /00607101/ [Concomitant]
     Indication: PAIN
     Dosage: 7.5 MG, UNK
     Route: 048
     Dates: start: 20130613
  7. LORTAB                             /00607101/ [Concomitant]
     Dosage: 10 MG, UNK
     Route: 048
     Dates: start: 20130808
  8. METFORMIN [Concomitant]
     Dosage: 500 MG, UNK
     Dates: start: 20130613
  9. NEURONTIN [Concomitant]
     Dosage: 300 MG, QD
     Route: 048
     Dates: start: 20130613
  10. PRILOSEC                           /00661201/ [Concomitant]
     Dosage: 20 MG, QD
     Route: 048
     Dates: start: 20130613
  11. PROZAC [Concomitant]
     Dosage: 20 MG, QD
     Route: 048
     Dates: start: 20130613
  12. SPIRIVA [Concomitant]
     Dosage: 18 ?G, UNK
     Route: 055
     Dates: start: 20130613
  13. VENTOLIN                           /00139501/ [Concomitant]
     Dosage: 90 ?G, UNK
     Dates: start: 20130613

REACTIONS (2)
  - Pneumonia [Fatal]
  - Plasma cell myeloma [Fatal]
